FAERS Safety Report 4592143-7 (Version None)
Quarter: 2005Q1

REPORT INFORMATION
  Report Type: 
  Country: None (occurrence: None)
  Receive Date: 20050226
  Receipt Date: 20041216
  Transmission Date: 20050727
  Serious: Yes (Death, Disabling, Other)
  Sender: FDA-Public Use
  Company Number: US-MERCK-0412USA02084

PATIENT
  Age: 79 Year
  Sex: Female
  Weight: 47 kg

DRUGS (4)
  1. COZAAR [Suspect]
     Indication: CARDIAC FAILURE CONGESTIVE
     Route: 048
     Dates: start: 20040901, end: 20041130
  2. LANOXIN [Concomitant]
     Route: 065
  3. LASIX [Concomitant]
     Route: 065
  4. [THERAPY UNSPECIFIED] [Concomitant]
     Indication: THYROID DISORDER
     Route: 065

REACTIONS (4)
  - ASTHENIA [None]
  - BREAST CANCER [None]
  - DEATH [None]
  - MYALGIA [None]
